FAERS Safety Report 13828934 (Version 1)
Quarter: 2017Q3

REPORT INFORMATION
  Report Type: Spontaneous
  Country: US (occurrence: US)
  Receive Date: 20170802
  Receipt Date: 20170802
  Transmission Date: 20171127
  Serious: Yes (Hospitalization)
  Sender: FDA-Public Use
  Company Number: None

PATIENT
  Age: 68 Year
  Sex: Female
  Weight: 116 kg

DRUGS (3)
  1. ENTEREG [Suspect]
     Active Substance: ALVIMOPAN
     Indication: SMALL INTESTINAL RESECTION
     Route: 048
     Dates: start: 20170728, end: 20170802
  2. ENTEREG [Suspect]
     Active Substance: ALVIMOPAN
     Indication: POSTOPERATIVE CARE
     Route: 048
     Dates: start: 20170728, end: 20170802
  3. ENTEREG [Suspect]
     Active Substance: ALVIMOPAN
     Indication: COLECTOMY TOTAL
     Route: 048
     Dates: start: 20170728, end: 20170802

REACTIONS (2)
  - Troponin increased [None]
  - Chest pain [None]

NARRATIVE: CASE EVENT DATE: 20170802
